FAERS Safety Report 4843833-X (Version None)
Quarter: 2005Q4

REPORT INFORMATION
  Report Type: 
  Country: None (occurrence: None)
  Receive Date: 20051202
  Receipt Date: 20051129
  Transmission Date: 20060501
  Serious: Yes (Hospitalization)
  Sender: FDA-Public Use
  Company Number: 2005-UK-02368UK

PATIENT
  Age: 62 Year
  Sex: Male

DRUGS (2)
  1. BECLOMETHASONE DIPROPIONATE [Suspect]
     Indication: CHRONIC OBSTRUCTIVE PULMONARY DISEASE
     Dosage: 2PUFF TWICE PER DAY
  2. DUOVENT [Suspect]
     Indication: CHRONIC OBSTRUCTIVE PULMONARY DISEASE
     Dosage: 2PUFF TWICE PER DAY

REACTIONS (1)
  - PNEUMONIA [None]
